FAERS Safety Report 9701242 (Version 4)
Quarter: 2015Q4

REPORT INFORMATION
  Report Type: Spontaneous
  Country: US (occurrence: US)
  Receive Date: 20131121
  Receipt Date: 20151016
  Transmission Date: 20160305
  Serious: Yes (Other)
  Sender: FDA-Public Use
  Company Number: US-BAYER-2013-139499

PATIENT
  Age: 42 Year
  Sex: Female

DRUGS (3)
  1. MIRENA [Suspect]
     Active Substance: LEVONORGESTREL
     Indication: CONTRACEPTION
     Dosage: 20 MCG/24HR CONT
     Route: 015
     Dates: start: 200603, end: 201205
  2. MIRENA [Suspect]
     Active Substance: LEVONORGESTREL
     Indication: CONTRACEPTION
     Dosage: 20 MCG/24HR, CONT
     Route: 015
     Dates: start: 2014
  3. MIRENA [Suspect]
     Active Substance: LEVONORGESTREL
     Indication: CONTRACEPTION
     Dosage: 20 MCG/24HR, CONT
     Route: 015
     Dates: start: 201205, end: 2014

REACTIONS (9)
  - Metrorrhagia [None]
  - Menorrhagia [None]
  - Genital haemorrhage [None]
  - Device defective [None]
  - Device difficult to use [Recovered/Resolved]
  - Hypomenorrhoea [None]
  - Amenorrhoea [None]
  - Intentional device misuse [None]
  - Embedded device [None]

NARRATIVE: CASE EVENT DATE: 2014
